FAERS Safety Report 20289022 (Version 2)
Quarter: 2022Q1

REPORT INFORMATION
  Report Type: Spontaneous
  Country: US (occurrence: US)
  Receive Date: 20220104
  Receipt Date: 20220112
  Transmission Date: 20220423
  Serious: No
  Sender: FDA-Public Use
  Company Number: US-AMGEN-USASP2021205963

PATIENT
  Age: 74 Year
  Sex: Male
  Weight: 289.6 kg

DRUGS (3)
  1. REPATHA [Suspect]
     Active Substance: EVOLOCUMAB
     Indication: Blood cholesterol increased
     Dosage: UNK UNK, QMO
     Route: 065
  2. REPATHA [Suspect]
     Active Substance: EVOLOCUMAB
     Indication: Type IIa hyperlipidaemia
  3. VASCEPA [Concomitant]
     Active Substance: ICOSAPENT ETHYL

REACTIONS (1)
  - Device difficult to use [Unknown]

NARRATIVE: CASE EVENT DATE: 20211227
